FAERS Safety Report 7261697-4 (Version None)
Quarter: 2011Q1

REPORT INFORMATION
  Report Type: 
  Country: None (occurrence: None)
  Receive Date: 20110130
  Receipt Date: 20101022
  Transmission Date: 20110831
  Serious: No
  Sender: FDA-Public Use
  Company Number: US-ABBOTT-10P-163-0680949-00

PATIENT
  Age: 60 Year
  Sex: Male

DRUGS (14)
  1. PRILOSEC [Concomitant]
     Indication: PROPHYLAXIS
  2. HUMIRA [Suspect]
     Indication: CROHN'S DISEASE
  3. GENTAMICIN [Concomitant]
     Indication: PRODUCT USED FOR UNKNOWN INDICATION
     Dosage: DAILY TO BIG TOE
  4. NAFTIN [Concomitant]
     Indication: INFLAMMATION
  5. HYDROCHLOROTHIAZIDE [Concomitant]
     Indication: HYPERTENSION
  6. ASPIRIN [Concomitant]
     Indication: CARDIAC DISORDER
     Dosage: DAILY
  7. METAMUCIL-2 [Concomitant]
     Indication: CONSTIPATION
     Dosage: DAILY
  8. DIOVAN [Concomitant]
     Indication: HYPERTENSION
  9. LEXAPRO [Concomitant]
     Indication: DEPRESSION
  10. FLOVENT [Concomitant]
     Indication: ASTHMA
  11. LEXAPRO [Concomitant]
     Indication: ANXIETY
  12. NAMENDA [Concomitant]
     Indication: MEMORY IMPAIRMENT
  13. FORVIA SUPPLEMENT [Concomitant]
     Indication: PRODUCT USED FOR UNKNOWN INDICATION
  14. NORVASC [Concomitant]
     Indication: HYPERTENSION

REACTIONS (1)
  - NASOPHARYNGITIS [None]
